FAERS Safety Report 7901589-8 (Version None)
Quarter: 2011Q4

REPORT INFORMATION
  Report Type: 
  Country: None (occurrence: None)
  Receive Date: 20111108
  Receipt Date: 20111102
  Transmission Date: 20120403
  Serious: Yes (Death, Hospitalization)
  Sender: FDA-Public Use
  Company Number: US-PFIZER INC-2011177624

PATIENT
  Sex: Female
  Weight: 44.898 kg

DRUGS (4)
  1. OXYMORPHONE [Concomitant]
     Indication: PAIN
     Dosage: UNK
  2. FENTANYL [Concomitant]
     Dosage: UNK
     Route: 058
  3. SUTENT [Suspect]
     Dosage: 25 MG, 2X/DAY
     Route: 048
     Dates: start: 20110830
  4. SUTENT [Suspect]
     Indication: BREAST CANCER METASTATIC
     Dosage: 25 MG, 2X/DAY
     Route: 048
     Dates: start: 20110721, end: 20110808

REACTIONS (3)
  - INTESTINAL OBSTRUCTION [None]
  - DEATH [None]
  - GASTRIC DISORDER [None]
